FAERS Safety Report 6615460-5 (Version None)
Quarter: 2010Q1

REPORT INFORMATION
  Report Type: 
  Country: None (occurrence: None)
  Receive Date: 20100305
  Receipt Date: 20100223
  Transmission Date: 20100710
  Serious: Yes (Death, Hospitalization)
  Sender: FDA-Public Use
  Company Number: IT-PFIZER INC-2009270768

PATIENT
  Age: 44 Year
  Sex: Male

DRUGS (4)
  1. SUTENT [Suspect]
     Indication: RENAL CANCER METASTATIC
     Dosage: 50 MG, X DAY
     Route: 048
     Dates: start: 20090806, end: 20090902
  2. EUTIROX [Concomitant]
     Route: 048
  3. BISOPROLOL [Concomitant]
     Route: 048
  4. METHYLPREDNISOLONE [Concomitant]
     Route: 048

REACTIONS (1)
  - PLATELET COUNT DECREASED [None]
